FAERS Safety Report 20709696 (Version 2)
Quarter: 2022Q3

REPORT INFORMATION
  Report Type: Report from Study
  Country: US (occurrence: US)
  Receive Date: 20220414
  Receipt Date: 20220708
  Transmission Date: 20221027
  Serious: No
  Sender: FDA-Public Use
  Company Number: US-NOVARTISTESTPH-NVSC2022US084993

PATIENT
  Sex: Female

DRUGS (1)
  1. COSENTYX [Suspect]
     Active Substance: SECUKINUMAB
     Indication: Psoriasis
     Dosage: 300 MG, QMO
     Route: 058

REACTIONS (6)
  - Hypersensitivity [Unknown]
  - Oral discomfort [Unknown]
  - Product intolerance [Unknown]
  - Lip dry [Unknown]
  - Chapped lips [Unknown]
  - Rash macular [Unknown]
